FAERS Safety Report 8255932-3 (Version None)
Quarter: 2012Q2

REPORT INFORMATION
  Report Type: 
  Country: None (occurrence: None)
  Receive Date: 20120403
  Receipt Date: 20120326
  Transmission Date: 20120825
  Serious: Yes (Death, Other)
  Sender: FDA-Public Use
  Company Number: US-ROCHE-1053325

PATIENT

DRUGS (2)
  1. AVASTIN [Suspect]
     Indication: ENDOMETRIAL CANCER
  2. TEMSIROLIMUS [Suspect]
     Indication: ENDOMETRIAL CANCER
     Route: 042

REACTIONS (6)
  - HAEMORRHAGE [None]
  - INTESTINAL PERFORATION [None]
  - THROMBOSIS [None]
  - DEATH [None]
  - EMBOLISM [None]
  - FEMALE GENITAL TRACT FISTULA [None]
